FAERS Safety Report 10042345 (Version 3)
Quarter: 2015Q3

REPORT INFORMATION
  Report Type: Spontaneous
  Country: SE (occurrence: SE)
  Receive Date: 20140327
  Receipt Date: 20150922
  Transmission Date: 20151125
  Serious: Yes (Life-Threatening, Hospitalization)
  Sender: FDA-Public Use
  Company Number: SE-ASTRAZENECA-2014SE19219

PATIENT
  Age: 46 Year
  Sex: Male

DRUGS (6)
  1. ATACAND [Suspect]
     Active Substance: CANDESARTAN CILEXETIL
     Dosage: 100 TABLETS
     Route: 048
     Dates: start: 20140302, end: 20140302
  2. ATACAND [Suspect]
     Active Substance: CANDESARTAN CILEXETIL
     Dosage: 50 TABLETS
     Route: 048
  3. FURIX [Concomitant]
     Active Substance: FUROSEMIDE
  4. CHAMPIX [Concomitant]
     Active Substance: VARENICLINE TARTRATE
  5. ALCOHOL. [Concomitant]
     Active Substance: ALCOHOL
     Dosage: 37 CL OF 40% ALCOHOL
  6. SPIRONOLAKTON [Concomitant]
     Active Substance: SPIRONOLACTONE
     Dosage: NYCOMED

REACTIONS (6)
  - Gastrointestinal haemorrhage [Unknown]
  - Intentional overdose [Unknown]
  - Toxicity to various agents [Unknown]
  - Intentional self-injury [Unknown]
  - Microcytic anaemia [Unknown]
  - Suicide attempt [Unknown]

NARRATIVE: CASE EVENT DATE: 20140302
